FAERS Safety Report 6785883-2 (Version None)
Quarter: 2010Q2

REPORT INFORMATION
  Report Type: 
  Country: None (occurrence: None)
  Receive Date: 20100621
  Receipt Date: 20100621
  Transmission Date: 20101027
  Serious: Yes (Life-Threatening, Hospitalization, Disabling, Other)
  Sender: FDA-Public Use
  Company Number: None

PATIENT
  Sex: Male
  Weight: 127.3 kg

DRUGS (2)
  1. RISPERIDONE [Suspect]
     Indication: BIPOLAR I DISORDER
     Dosage: MANY OVERDOSES OVER 42+ YEARS SEE ATTACHED LETTER
  2. RISPERIDONE [Suspect]
     Indication: DISABILITY
     Dosage: MANY OVERDOSES OVER 42+ YEARS SEE ATTACHED LETTER

REACTIONS (3)
  - MOVEMENT DISORDER [None]
  - MULTI-ORGAN DISORDER [None]
  - PAIN [None]
